FAERS Safety Report 16759838 (Version 2)
Quarter: 2020Q1

REPORT INFORMATION
  Report Type: Spontaneous
  Country: CA (occurrence: CA)
  Receive Date: 20190830
  Receipt Date: 20200212
  Transmission Date: 20200409
  Serious: Yes (Death)
  Sender: FDA-Public Use
  Company Number: CA-PFIZER INC-2019369670

PATIENT
  Age: 62 Year
  Sex: Male

DRUGS (4)
  1. PAMIDRONATE DISODIUM. [Suspect]
     Active Substance: PAMIDRONATE DISODIUM
     Indication: RENAL CELL CARCINOMA
     Dosage: UNK
     Route: 042
  2. ZOMETA [Suspect]
     Active Substance: ZOLEDRONIC ACID
     Dosage: UNK
     Route: 042
     Dates: end: 2012
  3. ZOMETA [Suspect]
     Active Substance: ZOLEDRONIC ACID
     Dosage: 4 MG, UNK [1 EVERY 2 WEEK(S)]
     Route: 042
  4. ZOMETA [Suspect]
     Active Substance: ZOLEDRONIC ACID
     Indication: RENAL CELL CARCINOMA
     Dosage: 4 MG, UNK [1 EVERY 8 DAY(S)]
     Route: 042

REACTIONS (7)
  - Hypoalbuminaemia [Unknown]
  - Confusional state [Unknown]
  - Somnolence [Unknown]
  - Therapeutic response decreased [Unknown]
  - Death [Fatal]
  - Heart rate increased [Unknown]
  - Hypercalcaemia [Unknown]

NARRATIVE: CASE EVENT DATE: 2012
